FAERS Safety Report 9971800 (Version 1)
Quarter: 2014Q1

REPORT INFORMATION
  Report Type: Report from Study
  Country: US (occurrence: US)
  Receive Date: 20140306
  Receipt Date: 20140306
  Transmission Date: 20141002
  Serious: No
  Sender: FDA-Public Use
  Company Number: US-ABBVIE-13P-163-1152691-00

PATIENT
  Age: 51 Year
  Sex: Female

DRUGS (5)
  1. HUMIRA [Suspect]
     Indication: PSORIASIS
     Dosage: LOADING DOSE
     Dates: start: 20130924, end: 20130924
  2. ATARAX [Concomitant]
     Indication: PRURITUS
  3. METOPROLOL [Concomitant]
     Indication: HYPERTENSION
  4. AMLODIPINE [Concomitant]
     Indication: HYPERTENSION
     Dosage: 5MG DAILY
  5. SYMBICORT [Concomitant]
     Indication: CHRONIC OBSTRUCTIVE PULMONARY DISEASE
     Dosage: INHALER DAILY

REACTIONS (2)
  - Injection site haemorrhage [Not Recovered/Not Resolved]
  - Pruritus [Not Recovered/Not Resolved]
